FAERS Safety Report 21474083 (Version 1)
Quarter: 2022Q4

REPORT INFORMATION
  Report Type: Spontaneous
  Country: US (occurrence: US)
  Receive Date: 20221018
  Receipt Date: 20221018
  Transmission Date: 20230113
  Serious: No
  Sender: FDA-Public Use
  Company Number: US-MYLANLABS-2022M1113073

PATIENT
  Age: 65 Year
  Sex: Female
  Weight: 61.69 kg

DRUGS (2)
  1. SEMGLEE (INSULIN GLARGINE-YFGN) [Suspect]
     Active Substance: INSULIN GLARGINE-YFGN
     Indication: Type 1 diabetes mellitus
     Dosage: UNK, 100 INTERNATIONAL UNIT PER MILLILITRE
     Route: 065
     Dates: start: 20220901
  2. LYUMJEV [Concomitant]
     Active Substance: INSULIN LISPRO-AABC
     Indication: Type 1 diabetes mellitus
     Dosage: UNK
     Route: 065

REACTIONS (5)
  - Injection site pain [Unknown]
  - Weight increased [Unknown]
  - Poor quality product administered [Unknown]
  - Product contamination physical [Unknown]
  - Device issue [Unknown]

NARRATIVE: CASE EVENT DATE: 20220921
